FAERS Safety Report 5245335-8 (Version None)
Quarter: 2007Q1

REPORT INFORMATION
  Report Type: 
  Country: None (occurrence: None)
  Receive Date: 20070223
  Receipt Date: 20070212
  Transmission Date: 20070707
  Serious: Yes (Hospitalization)
  Sender: FDA-Public Use
  Company Number: US-AMGEN-US211217

PATIENT
  Sex: Female
  Weight: 113.5 kg

DRUGS (3)
  1. PROCRIT [Suspect]
     Indication: RENAL FAILURE CHRONIC
     Dates: start: 20070129, end: 20070201
  2. INDOCIN [Concomitant]
     Dates: end: 20070207
  3. OXYGEN [Concomitant]

REACTIONS (4)
  - AGGRESSION [None]
  - DISORIENTATION [None]
  - DYSARTHRIA [None]
  - GOUT [None]
